FAERS Safety Report 13446837 (Version 4)
Quarter: 2017Q2

REPORT INFORMATION
  Report Type: Spontaneous
  Country: US (occurrence: US)
  Receive Date: 20170417
  Receipt Date: 20170609
  Transmission Date: 20170830
  Serious: Yes (Other)
  Sender: FDA-Public Use
  Company Number: US-PFIZER INC-2017157040

PATIENT
  Age: 68 Year
  Sex: Female
  Weight: 75.1 kg

DRUGS (4)
  1. IBRANCE [Suspect]
     Active Substance: PALBOCICLIB
     Indication: BREAST CANCER METASTATIC
     Dosage: 100 MG, CYCLIC (DAILY ON DAYS 1-21 EVERY 28 DAYS (3 WEEKS ON 1 WEEK OFF))
     Route: 048
  2. IBRANCE [Suspect]
     Active Substance: PALBOCICLIB
     Dosage: 125 MG, 1X/DAY
     Dates: start: 20170306
  3. LETROZOLE. [Concomitant]
     Active Substance: LETROZOLE
     Indication: BLOOD OESTROGEN
     Dosage: 2.5 MG, 1X/DAY
  4. FASLODEX [Concomitant]
     Active Substance: FULVESTRANT
     Dosage: UNK
     Dates: start: 20170306

REACTIONS (3)
  - White blood cell count decreased [Recovered/Resolved]
  - Infection susceptibility increased [Recovered/Resolved]
  - Neoplasm progression [Unknown]
